FAERS Safety Report 14338344 (Version 1)
Quarter: 2017Q4

REPORT INFORMATION
  Report Type: Spontaneous
  Country: GB (occurrence: GB)
  Receive Date: 20171229
  Receipt Date: 20171229
  Transmission Date: 20180321
  Serious: Yes (Other)
  Sender: FDA-Public Use
  Company Number: GB-SA-2017SA257912

PATIENT
  Age: 49 Year
  Sex: Female

DRUGS (12)
  1. PARACETAMOL [Concomitant]
     Active Substance: ACETAMINOPHEN
     Dosage: 1 OR 2 4 TIMES A DAY
     Route: 065
  2. OILATUM [Concomitant]
     Route: 065
  3. FEXOFENADINE HYDROCHLORIDE. [Suspect]
     Active Substance: FEXOFENADINE HYDROCHLORIDE
     Indication: SEASONAL ALLERGY
     Route: 048
     Dates: end: 20170502
  4. VENTOLIN [Concomitant]
     Active Substance: ALBUTEROL SULFATE
     Route: 065
  5. RINATEC [Concomitant]
     Dosage: TWO SPRAYS TO BE USED IN EACH NOSTRIL TWICE A DAY FOR 2 MONTHS
     Route: 045
  6. CLINITAS [Concomitant]
     Dosage: 3-4 TIMES A DAY
     Route: 065
  7. SODIUM CROMOGLICATE/SODIUM CROMOGLICATE [Concomitant]
     Indication: EYE DISORDER
  8. NEDOCROMIL [Concomitant]
     Active Substance: NEDOCROMIL
     Indication: EYE DISORDER
     Route: 065
  9. DERMOL [Concomitant]
     Active Substance: BENZALKONIUM CHLORIDE\CHLORHEXIDINE HYDROCHLORIDE\ISOPROPYL MYRISTATE\PARAFFIN
     Dosage: USE AS SOAP SUBSTITUTE
  10. LANSOPRAZOLE. [Concomitant]
     Active Substance: LANSOPRAZOLE
     Route: 065
  11. FEXOFENADINE HYDROCHLORIDE. [Suspect]
     Active Substance: FEXOFENADINE HYDROCHLORIDE
     Indication: SEASONAL ALLERGY
     Route: 048
  12. PROPRANOLOL [Concomitant]
     Active Substance: PROPRANOLOL HYDROCHLORIDE
     Indication: ANXIETY
     Dosage: 2 MORNING, 2 MID AFTERNOON AND 2 NIGHTAND REVIEW IN 2-3 WEEKS
     Route: 065

REACTIONS (1)
  - Palpitations [Unknown]
